FAERS Safety Report 15145143 (Version 2)
Quarter: 2018Q3

REPORT INFORMATION
  Report Type: Spontaneous
  Country: US (occurrence: US)
  Receive Date: 20180713
  Receipt Date: 20180831
  Transmission Date: 20181010
  Serious: No
  Sender: FDA-Public Use
  Company Number: US-INTERCEPT-PMOCA2018000464

PATIENT

DRUGS (2)
  1. OCALIVA [Suspect]
     Active Substance: OBETICHOLIC ACID
     Indication: PRIMARY BILIARY CHOLANGITIS
     Dosage: 5 MG, QD
     Route: 048
     Dates: start: 20180306
  2. OCALIVA [Suspect]
     Active Substance: OBETICHOLIC ACID
     Dosage: 10 MG, QD
     Route: 048
     Dates: start: 201803, end: 20180811

REACTIONS (6)
  - Wrist fracture [Unknown]
  - Blood alkaline phosphatase increased [Unknown]
  - Fall [Unknown]
  - Hypoaesthesia [Unknown]
  - Dyspepsia [Unknown]
  - Pruritus [Unknown]

NARRATIVE: CASE EVENT DATE: 20180309
